FAERS Safety Report 13233946 (Version 2)
Quarter: 2019Q2

REPORT INFORMATION
  Report Type: Other
  Country: CA (occurrence: CA)
  Receive Date: 20170215
  Receipt Date: 20190617
  Transmission Date: 20190711
  Serious: Yes (Hospitalization, Other)
  Sender: FDA-Public Use
  Company Number: CA-APOTEX-2017AP006490

PATIENT
  Age: 62 Year
  Sex: Female

DRUGS (13)
  1. ZINC. [Concomitant]
     Active Substance: ZINC
     Indication: PRODUCT USED FOR UNKNOWN INDICATION
     Route: 065
  2. IMATINIB. [Suspect]
     Active Substance: IMATINIB MESYLATE
     Indication: GASTROINTESTINAL STROMAL TUMOUR
     Dosage: 300 MG, QD
     Route: 048
  3. GLEEVEC [Suspect]
     Active Substance: IMATINIB MESYLATE
     Indication: GASTROINTESTINAL STROMAL TUMOUR
     Dosage: 300 MG, QD
     Route: 048
  4. GRAVOL [Suspect]
     Active Substance: DIMENHYDRINATE
     Indication: NAUSEA
     Route: 065
  5. STATEX                             /00036302/ [Suspect]
     Active Substance: MORPHINE SULFATE
     Indication: PAIN
     Route: 065
  6. MEZAVANT [Concomitant]
     Active Substance: MESALAMINE
     Indication: PRODUCT USED FOR UNKNOWN INDICATION
     Dosage: 2 DF, QD
     Route: 065
  7. ERGOCALCIFEROL. [Concomitant]
     Active Substance: ERGOCALCIFEROL
     Indication: PRODUCT USED FOR UNKNOWN INDICATION
     Route: 065
  8. METRONIDAZOLE. [Suspect]
     Active Substance: METRONIDAZOLE
     Indication: DIVERTICULITIS
     Route: 065
  9. MORPHINE [Suspect]
     Active Substance: MORPHINE
     Indication: PAIN
     Dosage: UNK
     Route: 065
  10. CIPROFLOXACIN. [Suspect]
     Active Substance: CIPROFLOXACIN
     Indication: DIVERTICULITIS
     Dosage: UNK
     Route: 065
  11. LANSOPRAZOLE. [Concomitant]
     Active Substance: LANSOPRAZOLE
     Indication: PRODUCT USED FOR UNKNOWN INDICATION
     Route: 065
  12. NORITATE [Suspect]
     Active Substance: METRONIDAZOLE
     Indication: DIVERTICULITIS
     Dosage: UNK
     Route: 065
  13. MEZAVANT [Concomitant]
     Active Substance: MESALAMINE
     Dosage: 1 DF, QD
     Route: 065

REACTIONS (34)
  - Parosmia [Not Recovered/Not Resolved]
  - Somnolence [Not Recovered/Not Resolved]
  - Abdominal pain [Not Recovered/Not Resolved]
  - Eye infection [Not Recovered/Not Resolved]
  - Faeces discoloured [Not Recovered/Not Resolved]
  - Hyperhidrosis [Not Recovered/Not Resolved]
  - Joint swelling [Not Recovered/Not Resolved]
  - Back pain [Not Recovered/Not Resolved]
  - Feeling abnormal [Not Recovered/Not Resolved]
  - Keratitis [Not Recovered/Not Resolved]
  - Abdominal pain upper [Not Recovered/Not Resolved]
  - Vomiting [Not Recovered/Not Resolved]
  - Eye swelling [Not Recovered/Not Resolved]
  - Gastrooesophageal reflux disease [Not Recovered/Not Resolved]
  - Underdose [Not Recovered/Not Resolved]
  - Nausea [Not Recovered/Not Resolved]
  - Diarrhoea [Not Recovered/Not Resolved]
  - Contusion [Not Recovered/Not Resolved]
  - Musculoskeletal pain [Not Recovered/Not Resolved]
  - Erythema [Not Recovered/Not Resolved]
  - Abnormal faeces [Not Recovered/Not Resolved]
  - Pain in extremity [Not Recovered/Not Resolved]
  - Rash [Not Recovered/Not Resolved]
  - Hypersensitivity [Not Recovered/Not Resolved]
  - Insomnia [Not Recovered/Not Resolved]
  - Ligament sprain [Not Recovered/Not Resolved]
  - Swelling [Not Recovered/Not Resolved]
  - Alopecia [Not Recovered/Not Resolved]
  - Dry mouth [Not Recovered/Not Resolved]
  - Muscle spasms [Not Recovered/Not Resolved]
  - Diverticulitis [Not Recovered/Not Resolved]
  - Eyelid margin crusting [Not Recovered/Not Resolved]
  - Muscle spasticity [Not Recovered/Not Resolved]
  - Colitis [Not Recovered/Not Resolved]
